FAERS Safety Report 19936136 (Version 1)
Quarter: 2021Q4

REPORT INFORMATION
  Report Type: Spontaneous
  Country: US (occurrence: US)
  Receive Date: 20211009
  Receipt Date: 20211009
  Transmission Date: 20220303
  Serious: Yes (Hospitalization)
  Sender: FDA-Public Use
  Company Number: US-AMGEN-USASP2021151560

PATIENT
  Age: 75 Year
  Sex: Male
  Weight: 108.84 kg

DRUGS (7)
  1. PROCRIT [Suspect]
     Active Substance: ERYTHROPOIETIN
     Indication: Product used for unknown indication
     Dosage: UNK
     Route: 065
  2. ORENITRAM [Suspect]
     Active Substance: TREPROSTINIL
     Indication: Pulmonary arterial hypertension
     Dosage: 5 MILLIGRAM
     Route: 048
     Dates: start: 20171017
  3. TREPROSTINIL [Suspect]
     Active Substance: TREPROSTINIL
     Indication: Pulmonary arterial hypertension
     Dosage: UNK
     Route: 048
     Dates: start: 20171017
  4. TREPROSTINIL [Suspect]
     Active Substance: TREPROSTINIL
     Dosage: 5 MILLIGRAM, TID
     Route: 048
  5. AMBRISENTAN [Concomitant]
     Active Substance: AMBRISENTAN
     Dosage: UNK
     Route: 065
  6. TADALAFIL [Concomitant]
     Active Substance: TADALAFIL
     Route: 065
  7. WARFARIN [Concomitant]
     Active Substance: WARFARIN

REACTIONS (2)
  - Herpes zoster [Unknown]
  - Blister [Unknown]

NARRATIVE: CASE EVENT DATE: 20210831
